FAERS Safety Report 4458003-7 (Version None)
Quarter: 2004Q3

REPORT INFORMATION
  Report Type: 
  Country: None (occurrence: None)
  Receive Date: 20040917
  Receipt Date: 20040628
  Transmission Date: 20050211
  Serious: Yes (Other)
  Sender: FDA-Public Use
  Company Number: US-JNJFOC-20040400704

PATIENT
  Sex: Female

DRUGS (3)
  1. TOPAMAX [Suspect]
     Indication: DEPRESSION
     Dosage: ORAL
     Route: 048
  2. TOPAMAX [Suspect]
     Indication: MIGRAINE
     Dosage: ORAL
     Route: 048
  3. ANTIDEPRESSANT (ANTIDEPRESSANTS) [Suspect]

REACTIONS (1)
  - WEIGHT DECREASED [None]
